FAERS Safety Report 24262636 (Version 1)
Quarter: 2024Q3

REPORT INFORMATION
  Report Type: Report from Study
  Country: US (occurrence: None)
  Receive Date: 20240829
  Receipt Date: 20240829
  Transmission Date: 20241016
  Serious: Yes (Hospitalization)
  Sender: ASTRAZENECA
  Company Number: 2024A191128

PATIENT
  Sex: Female

DRUGS (17)
  1. LYNPARZA [Suspect]
     Active Substance: OLAPARIB
     Indication: Ovarian cancer
     Route: 048
     Dates: start: 20240809
  2. CARVEDILOL [Concomitant]
     Active Substance: CARVEDILOL
  3. COMPAZINE [Concomitant]
     Active Substance: PROCHLORPERAZINE MALEATE
  4. ELIQUIS [Concomitant]
     Active Substance: APIXABAN
  5. ERGOCALCIFEROL [Concomitant]
     Active Substance: ERGOCALCIFEROL
  6. LASIX [Concomitant]
     Active Substance: FUROSEMIDE
  7. LISINOPRIL [Concomitant]
     Active Substance: LISINOPRIL
  8. LORATADINE [Concomitant]
     Active Substance: LORATADINE
  9. NEXIUM [Concomitant]
     Active Substance: ESOMEPRAZOLE MAGNESIUM
  10. NITROGLYCERIN [Concomitant]
     Active Substance: NITROGLYCERIN
  11. ONDANSETRON [Concomitant]
     Active Substance: ONDANSETRON
  12. PREGABALIN [Concomitant]
     Active Substance: PREGABALIN
  13. TRAMADOL [Concomitant]
     Active Substance: TRAMADOL\TRAMADOL HYDROCHLORIDE
  14. TYLENOL [Concomitant]
     Active Substance: ACETAMINOPHEN
  15. VENLAFAXINE [Concomitant]
     Active Substance: VENLAFAXINE HYDROCHLORIDE
  16. VEOZAH [Concomitant]
     Active Substance: FEZOLINETANT
  17. VITAMIN D3 [Concomitant]
     Active Substance: CHOLECALCIFEROL

REACTIONS (1)
  - Oxygen saturation decreased [Recovered/Resolved]
